FAERS Safety Report 9384407 (Version 1)
Quarter: 2013Q3

REPORT INFORMATION
  Report Type: Spontaneous
  Country: FR (occurrence: FR)
  Receive Date: 20130705
  Receipt Date: 20130705
  Transmission Date: 20140515
  Serious: Yes (Hospitalization)
  Sender: FDA-Public Use
  Company Number: PHHY2013FR070694

PATIENT
  Age: 76 Year
  Sex: Male

DRUGS (4)
  1. TEGRETOL LP [Suspect]
     Dosage: 600 MG, UNK (400 IN MORNING AND 200 IN EVENING)
     Route: 048
     Dates: start: 20130515, end: 20130620
  2. KEPPRA [Concomitant]
     Dosage: UNK
  3. EFFEXOR [Concomitant]
     Dosage: UNK
  4. LEVOTHYROX [Concomitant]
     Dosage: UNK

REACTIONS (3)
  - Hepatocellular injury [Not Recovered/Not Resolved]
  - Chills [Not Recovered/Not Resolved]
  - Pyrexia [Not Recovered/Not Resolved]
